FAERS Safety Report 8951225 (Version 1)
Quarter: 2012Q4

REPORT INFORMATION
  Report Type: 
  Country: US (occurrence: US)
  Receive Date: 20121207
  Receipt Date: 20121207
  Transmission Date: 20130627
  Serious: Yes (Other)
  Sender: FDA-Public Use
  Company Number: US-009507513-1212USA001093

PATIENT
  Sex: Female

DRUGS (2)
  1. TEMODAR [Suspect]
     Dosage: 75 mg/m2, qd
     Route: 048
  2. KEPPRA [Concomitant]

REACTIONS (1)
  - Pancytopenia [Recovering/Resolving]
